FAERS Safety Report 5009040-5 (Version None)
Quarter: 2006Q2

REPORT INFORMATION
  Report Type: 
  Country: None (occurrence: None)
  Receive Date: 20060523
  Receipt Date: 20060324
  Transmission Date: 20061013
  Serious: Yes (Hospitalization)
  Sender: FDA-Public Use
  Company Number: JP-BOEHRINGER INGELHEIM PHARMACEUTICALS, INC.-2006-BP-03864NB

PATIENT
  Sex: Male

DRUGS (4)
  1. SPIRIVA [Suspect]
     Indication: EMPHYSEMA
     Route: 055
     Dates: start: 20050722, end: 20060215
  2. HARNAL D (TAMSULOSIN HYDROCHLORIDE) [Concomitant]
     Indication: BENIGN PROSTATIC HYPERPLASIA
     Route: 048
     Dates: start: 20050805
  3. SELBEX [Concomitant]
     Indication: GASTRITIS
     Route: 048
     Dates: start: 20050804
  4. GASTER D [Concomitant]
     Indication: GASTRITIS
     Route: 048
     Dates: start: 20050804

REACTIONS (3)
  - ABDOMINAL PAIN [None]
  - DECREASED APPETITE [None]
  - PAROSMIA [None]
